FAERS Safety Report 23278921 (Version 1)
Quarter: 2023Q4

REPORT INFORMATION
  Report Type: Spontaneous
  Country: US (occurrence: US)
  Receive Date: 20231208
  Receipt Date: 20231208
  Transmission Date: 20240110
  Serious: No
  Sender: FDA-Public Use
  Company Number: US-NOVOPROD-990456

PATIENT
  Sex: Female

DRUGS (1)
  1. NOVOLIN 70/30 [Suspect]
     Active Substance: INSULIN HUMAN
     Indication: Product used for unknown indication
     Dosage: NOVOLIN 70/30 VIAL
     Route: 058

REACTIONS (5)
  - Disturbance in attention [Recovered/Resolved]
  - Gait disturbance [Recovered/Resolved]
  - Loss of personal independence in daily activities [Recovered/Resolved]
  - Fatigue [Recovered/Resolved]
  - Blood glucose increased [Recovered/Resolved]
